FAERS Safety Report 5070084-9 (Version None)
Quarter: 2006Q3

REPORT INFORMATION
  Report Type: 
  Country: None (occurrence: None)
  Receive Date: 20060803
  Receipt Date: 20060725
  Transmission Date: 20061208
  Serious: Yes (Other)
  Sender: FDA-Public Use
  Company Number: JP-BRISTOL-MYERS SQUIBB COMPANY-13462189

PATIENT
  Sex: Male

DRUGS (1)
  1. SINEMET [Suspect]
     Dates: start: 20060716

REACTIONS (4)
  - DELIRIUM [None]
  - DEMENTIA [None]
  - HYPERTONIA [None]
  - TONGUE BLACK HAIRY [None]
